FAERS Safety Report 17638473 (Version 1)
Quarter: 2020Q2

REPORT INFORMATION
  Report Type: Spontaneous
  Country: CN (occurrence: CN)
  Receive Date: 20200407
  Receipt Date: 20200407
  Transmission Date: 20200713
  Serious: Yes (Other)
  Sender: FDA-Public Use
  Company Number: CN-ROCHE-2573670

PATIENT
  Age: 56 Year
  Sex: Female

DRUGS (12)
  1. DOCETAXEL. [Concomitant]
     Active Substance: DOCETAXEL
     Route: 041
     Dates: start: 201609, end: 201704
  2. FULVESTRANT. [Concomitant]
     Active Substance: FULVESTRANT
     Route: 065
     Dates: start: 201712, end: 201802
  3. CHIDAMIDE [Concomitant]
     Active Substance: TUCIDINOSTAT
     Route: 048
     Dates: start: 201906, end: 201908
  4. PACLITAXEL. [Concomitant]
     Active Substance: PACLITAXEL
     Route: 041
     Dates: start: 201812, end: 201905
  5. DOXORUBICIN [Concomitant]
     Active Substance: DOXORUBICIN
     Route: 041
     Dates: start: 201908, end: 201911
  6. XELODA [Suspect]
     Active Substance: CAPECITABINE
     Indication: INVASIVE DUCTAL BREAST CARCINOMA
  7. GEMCITABINE. [Concomitant]
     Active Substance: GEMCITABINE
     Route: 041
     Dates: start: 201808, end: 201811
  8. XELODA [Suspect]
     Active Substance: CAPECITABINE
     Indication: MASTECTOMY
     Route: 048
     Dates: start: 201609, end: 201704
  9. ANASTROZOLE. [Concomitant]
     Active Substance: ANASTROZOLE
     Dosage: 1 DF=1 PILL
     Route: 065
     Dates: start: 201705, end: 201712
  10. VINORELBINE [Concomitant]
     Active Substance: VINORELBINE TARTRATE
     Route: 041
     Dates: start: 201803, end: 201809
  11. EXEMESTANE. [Concomitant]
     Active Substance: EXEMESTANE
     Dosage: 1 DF=1 PILL
     Route: 048
     Dates: start: 201906, end: 201908
  12. PEMBROLIZUMAB. [Concomitant]
     Active Substance: PEMBROLIZUMAB
     Route: 041
     Dates: start: 201908, end: 201911

REACTIONS (4)
  - Hypothyroidism [Unknown]
  - Bone marrow disorder [Unknown]
  - Urinary tract infection [Unknown]
  - Renal impairment [Unknown]

NARRATIVE: CASE EVENT DATE: 2019
